FAERS Safety Report 10172153 (Version 1)
Quarter: 2014Q2

REPORT INFORMATION
  Report Type: Spontaneous
  Country: US (occurrence: US)
  Receive Date: 20140515
  Receipt Date: 20140515
  Transmission Date: 20141212
  Serious: Yes (Other)
  Sender: FDA-Public Use
  Company Number: CHPA2014US006438

PATIENT
  Sex: Female

DRUGS (1)
  1. CONTROL STEP 2 14MG [Suspect]
     Indication: SMOKING CESSATION THERAPY
     Dosage: UNK
     Route: 062
     Dates: start: 20140501

REACTIONS (1)
  - Haematemesis [Unknown]
